FAERS Safety Report 16424415 (Version 2)
Quarter: 2019Q2

REPORT INFORMATION
  Report Type: Spontaneous
  Country: US (occurrence: US)
  Receive Date: 20190613
  Receipt Date: 20190618
  Transmission Date: 20190711
  Serious: No
  Sender: FDA-Public Use
  Company Number: US-DRREDDYS-USA/USA/19/0110990

PATIENT
  Age: 19 Year
  Sex: Female

DRUGS (1)
  1. SIROLIMUS. [Suspect]
     Active Substance: SIROLIMUS
     Indication: STEM CELL TRANSPLANT
     Route: 065

REACTIONS (5)
  - Medication error [Unknown]
  - Blood bilirubin increased [Recovering/Resolving]
  - Vomiting [Unknown]
  - Nausea [Unknown]
  - Toxicity to various agents [Recovering/Resolving]
